FAERS Safety Report 9664547 (Version 1)
Quarter: 2013Q4

REPORT INFORMATION
  Report Type: Spontaneous
  Country: US (occurrence: None)
  Receive Date: 20131030
  Receipt Date: 20131030
  Transmission Date: 20140711
  Serious: Yes (Other)
  Sender: FDA-Public Use
  Company Number: None

PATIENT
  Sex: Female
  Weight: 57.15 kg

DRUGS (6)
  1. ADDERALL XR [Suspect]
     Indication: ATTENTION DEFICIT/HYPERACTIVITY DISORDER
     Dosage: ONE POQDAY
     Route: 048
  2. ADDERALL [Suspect]
     Dosage: ONE PO QDAT
     Route: 048
  3. LEVOTHYROXINE [Concomitant]
  4. ALBUTEROL [Concomitant]
  5. FLONASE [Concomitant]
  6. VITAMIN D [Concomitant]

REACTIONS (2)
  - Dry mouth [None]
  - Product substitution issue [None]
